FAERS Safety Report 6417769-7 (Version None)
Quarter: 2009Q4

REPORT INFORMATION
  Report Type: 
  Country: None (occurrence: None)
  Receive Date: 20091028
  Receipt Date: 20091019
  Transmission Date: 20100525
  Serious: Yes (Hospitalization, Other)
  Sender: FDA-Public Use
  Company Number: US-CELGENEUS-163-21880-09092364

PATIENT
  Sex: Male

DRUGS (1)
  1. REVLIMID [Suspect]
     Indication: MULTIPLE MYELOMA
     Route: 048
     Dates: start: 20090826, end: 20090907

REACTIONS (5)
  - COMA [None]
  - DISEASE PROGRESSION [None]
  - MALAISE [None]
  - MULTIPLE MYELOMA [None]
  - SEPSIS [None]
